FAERS Safety Report 7007534-4 (Version None)
Quarter: 2010Q2

REPORT INFORMATION
  Report Type: 
  Country: None (occurrence: None)
  Receive Date: 20100225
  Receipt Date: 20091113
  Transmission Date: 20101027
  Serious: No
  Sender: FDA-Public Use
  Company Number: US-JNJFOC-20091007183

PATIENT
  Age: 5 Year
  Sex: Female
  Weight: 17.2367 kg

DRUGS (2)
  1. CHILDREN'S MOTRIN [Suspect]
     Indication: PYREXIA
     Dosage: 150 MG, IN 1 TOTAL, ORAL
     Route: 048
     Dates: start: 20091020, end: 20091020
  2. FLOVENT [Concomitant]

REACTIONS (1)
  - HYPERSENSITIVITY [None]
